FAERS Safety Report 4844487-9 (Version None)
Quarter: 2005Q4

REPORT INFORMATION
  Report Type: 
  Country: None (occurrence: None)
  Receive Date: 20051203
  Receipt Date: 20051003
  Transmission Date: 20060501
  Serious: Yes (Other)
  Sender: FDA-Public Use
  Company Number: PHRM2005FR02631

PATIENT
  Age: 64 Year
  Sex: Male
  Weight: 83 kg

DRUGS (5)
  1. ZOMETA [Suspect]
     Indication: METASTASES TO BONE
     Dosage: 4 MG, QMO
     Route: 042
     Dates: start: 20030901, end: 20051001
  2. DISTILBENE [Concomitant]
     Dates: start: 20030310
  3. CORTANCYL [Concomitant]
     Dates: start: 20030701
  4. TAXOTERE [Concomitant]
  5. NAVELBINE [Concomitant]

REACTIONS (4)
  - BONE DISORDER [None]
  - MUCOSAL ULCERATION [None]
  - OSTEONECROSIS [None]
  - WOUND DEBRIDEMENT [None]
